FAERS Safety Report 5692241-0 (Version None)
Quarter: 2008Q2

REPORT INFORMATION
  Report Type: 
  Country: None (occurrence: None)
  Receive Date: 20080328
  Receipt Date: 20070309
  Transmission Date: 20081010
  Serious: Yes (Other)
  Sender: FDA-Public Use
  Company Number: PHEH2007US02928

PATIENT
  Age: 70 Year
  Sex: Male

DRUGS (1)
  1. VIVELLE-DOT [Suspect]
     Indication: PROSTATE CANCER
     Dosage: 0.1 MG/DAY, 8 PATCHES EVERY 3 DAYS, TRANSDERMAL
     Route: 062
     Dates: start: 20060101, end: 20060801

REACTIONS (1)
  - CEREBROVASCULAR ACCIDENT [None]
